FAERS Safety Report 4289616-3 (Version None)
Quarter: 2004Q1

REPORT INFORMATION
  Report Type: 
  Country: None (occurrence: None)
  Receive Date: 20040206
  Receipt Date: 20030522
  Transmission Date: 20041129
  Serious: Yes (Death, Other)
  Sender: FDA-Public Use
  Company Number: KII-2003-0007026

PATIENT
  Age: 54 Year
  Sex: Male
  Weight: 136.1 kg

DRUGS (2)
  1. MORPHINE [Suspect]
     Indication: DRUG USE FOR UNKNOWN INDICATION
  2. BUTALBITAL [Suspect]
     Indication: DRUG USE FOR UNKNOWN INDICATION

REACTIONS (8)
  - ASPIRATION [None]
  - BALANCE DISORDER [None]
  - BLOOD PRESSURE INCREASED [None]
  - DYSARTHRIA [None]
  - MULTIPLE DRUG OVERDOSE [None]
  - OBSTRUCTIVE AIRWAYS DISORDER [None]
  - RESPIRATORY DEPRESSION [None]
  - SNORING [None]
